FAERS Safety Report 14258441 (Version 1)
Quarter: 2017Q4

REPORT INFORMATION
  Report Type: Spontaneous
  Country: US (occurrence: US)
  Receive Date: 20171206
  Receipt Date: 20171206
  Transmission Date: 20180321
  Serious: Yes (Other)
  Sender: FDA-Public Use
  Company Number: None

PATIENT
  Age: 42 Year
  Sex: Male
  Weight: 79.65 kg

DRUGS (4)
  1. PROZAC (GENERIC) [Concomitant]
  2. VIIBRYD [Suspect]
     Active Substance: VILAZODONE HYDROCHLORIDE
     Indication: DEPRESSION
     Dosage: ?          QUANTITY:1 TABLET(S);?
     Route: 048
     Dates: start: 20171108
  3. ADDERRAL (GENERIC) [Concomitant]
  4. KLONOPIN (GENERIC) [Concomitant]

REACTIONS (2)
  - Long QT syndrome [None]
  - Electrocardiogram abnormal [None]

NARRATIVE: CASE EVENT DATE: 20171205
